FAERS Safety Report 6061083-9 (Version None)
Quarter: 2009Q1

REPORT INFORMATION
  Report Type: 
  Country: None (occurrence: None)
  Receive Date: 20090129
  Receipt Date: 20090129
  Transmission Date: 20090719
  Serious: Yes (Hospitalization)
  Sender: FDA-Public Use
  Company Number: None

PATIENT
  Age: 72 Year
  Sex: Female
  Weight: 70.9 kg

DRUGS (3)
  1. GEMCITABINE [Suspect]
     Indication: PANCREATIC CARCINOMA
     Dosage: 1310 MG Q7 DAYS IVPB
     Route: 042
     Dates: start: 20090106, end: 20090113
  2. DOCETAXEL [Suspect]
     Indication: PANCREATIC CARCINOMA
     Dosage: 52 MG Q 7 DAYS IV
     Route: 042
     Dates: start: 20090106, end: 20090113
  3. CAPACITABINE [Suspect]
     Indication: PANCREATIC CARCINOMA
     Dosage: 1500 MG AM 100 MG PM BID PO
     Route: 048
     Dates: start: 20090102, end: 20090115

REACTIONS (4)
  - DIARRHOEA [None]
  - FEBRILE NEUTROPENIA [None]
  - NAUSEA [None]
  - VOMITING [None]
